APPROVED DRUG PRODUCT: SECTRAL
Active Ingredient: ACEBUTOLOL HYDROCHLORIDE
Strength: EQ 200MG BASE **Federal Register determination that product was not discontinued or withdrawn for safety or effectiveness reasons**
Dosage Form/Route: CAPSULE;ORAL
Application: N018917 | Product #001
Applicant: PROMIUS PHARMA LLC
Approved: Dec 28, 1984 | RLD: Yes | RS: No | Type: DISCN